FAERS Safety Report 4365834-0 (Version None)
Quarter: 2004Q2

REPORT INFORMATION
  Report Type: 
  Country: None (occurrence: None)
  Receive Date: 20040524
  Receipt Date: 20040414
  Transmission Date: 20050107
  Serious: No
  Sender: FDA-Public Use
  Company Number: SU-2004-002288

PATIENT
  Age: 57 Year
  Sex: Male
  Weight: 86.1834 kg

DRUGS (2)
  1. BENICAR [Suspect]
     Indication: HYPERTENSION
     Dosage: 20 MG QD PO
     Route: 048
     Dates: start: 20040314
  2. NORVASC [Concomitant]

REACTIONS (3)
  - FEELING ABNORMAL [None]
  - MYALGIA [None]
  - SINUSITIS [None]
